FAERS Safety Report 6503467-8 (Version None)
Quarter: 2009Q4

REPORT INFORMATION
  Report Type: 
  Country: None (occurrence: None)
  Receive Date: 20091217
  Receipt Date: 20091116
  Transmission Date: 20100525
  Serious: No
  Sender: FDA-Public Use
  Company Number: US-BAYER-200940858NA

PATIENT
  Age: 51 Year
  Sex: Male
  Weight: 73 kg

DRUGS (1)
  1. ULTRAVIST 300 [Suspect]
     Indication: ANGIOGRAM CEREBRAL
     Dosage: TOTAL DAILY DOSE: 100 ML  UNIT DOSE: 200 ML
     Route: 042
     Dates: start: 20091116, end: 20091116

REACTIONS (2)
  - NASAL CONGESTION [None]
  - SNEEZING [None]
